FAERS Safety Report 18872331 (Version 1)
Quarter: 2021Q1

REPORT INFORMATION
  Report Type: Spontaneous
  Country: US (occurrence: US)
  Receive Date: 20210210
  Receipt Date: 20210210
  Transmission Date: 20210420
  Serious: Yes (Other)
  Sender: FDA-Public Use
  Company Number: None

PATIENT
  Age: 48 Year
  Sex: Female
  Weight: 69.75 kg

DRUGS (7)
  1. PRISTIQ EXTENDED?RELEASE [Concomitant]
     Active Substance: DESVENLAFAXINE SUCCINATE
  2. MEDICATED FADE CREME WITH SUNSCREEN [Suspect]
     Active Substance: HYDROQUINONE\OCTINOXATE
     Indication: SKIN DISCOLOURATION
     Route: 061
     Dates: start: 20210130, end: 20210209
  3. MEDICATED FADE CREME WITH SUNSCREEN [Suspect]
     Active Substance: HYDROQUINONE\OCTINOXATE
     Indication: EPHELIDES
     Route: 061
     Dates: start: 20210130, end: 20210209
  4. VITAMIN D3 [Concomitant]
     Active Substance: CHOLECALCIFEROL
  5. MAGNESIUM [Concomitant]
     Active Substance: MAGNESIUM
  6. XYZAL [Concomitant]
     Active Substance: LEVOCETIRIZINE DIHYDROCHLORIDE
  7. BIOTIN [Concomitant]
     Active Substance: BIOTIN

REACTIONS (3)
  - Application site pain [None]
  - Application site vesicles [None]
  - Wound [None]

NARRATIVE: CASE EVENT DATE: 20210207
